FAERS Safety Report 16269442 (Version 1)
Quarter: 2019Q2

REPORT INFORMATION
  Report Type: Spontaneous
  Country: US (occurrence: US)
  Receive Date: 20190502
  Receipt Date: 20190502
  Transmission Date: 20190711
  Serious: Yes (Disabling)
  Sender: FDA-Public Use
  Company Number: None

PATIENT
  Age: 33 Year
  Sex: Female
  Weight: 58.5 kg

DRUGS (2)
  1. ALBUTEROL. [Concomitant]
     Active Substance: ALBUTEROL
  2. TRIAMCINOLONE ACETONIDE 0.1% [Suspect]
     Active Substance: TRIAMCINOLONE ACETONIDE
     Indication: DERMATITIS ATOPIC
     Route: 061
     Dates: start: 19970101, end: 20180307

REACTIONS (11)
  - Tremor [None]
  - Skin exfoliation [None]
  - Inflammatory marker increased [None]
  - Suicidal ideation [None]
  - Paraesthesia [None]
  - Anxiety [None]
  - Depression [None]
  - Eczema [None]
  - Night sweats [None]
  - Hallucination [None]
  - Amenorrhoea [None]

NARRATIVE: CASE EVENT DATE: 20180307
